FAERS Safety Report 11745847 (Version 1)
Quarter: 2015Q4

REPORT INFORMATION
  Report Type: Spontaneous
  Country: JP (occurrence: JP)
  Receive Date: 20151117
  Receipt Date: 20151117
  Transmission Date: 20160304
  Serious: Yes (Other)
  Sender: FDA-Public Use
  Company Number: JP-JNJFOC-20151113392

PATIENT

DRUGS (1)
  1. ZYTIGA [Suspect]
     Active Substance: ABIRATERONE ACETATE
     Indication: HORMONE-REFRACTORY PROSTATE CANCER
     Route: 048

REACTIONS (15)
  - Decreased appetite [Unknown]
  - Hypertension [Unknown]
  - Malaise [Unknown]
  - Blood potassium decreased [Unknown]
  - Chest pain [Unknown]
  - Diarrhoea [Unknown]
  - Anaphylactic reaction [Unknown]
  - Abdominal pain upper [Unknown]
  - Palpitations [Unknown]
  - Hepatic function abnormal [Unknown]
  - Oedema [Unknown]
  - Peripheral swelling [Unknown]
  - Pollakiuria [Unknown]
  - Nausea [Unknown]
  - Pneumonia [Unknown]
